FAERS Safety Report 25841847 (Version 2)
Quarter: 2025Q4

REPORT INFORMATION
  Report Type: Spontaneous
  Country: TR (occurrence: TR)
  Receive Date: 20250924
  Receipt Date: 20251010
  Transmission Date: 20260118
  Serious: Yes (Other)
  Sender: CELLTRION
  Company Number: TR-CELLTRION INC.-2025TR033803

PATIENT

DRUGS (1)
  1. TRUXIMA [Suspect]
     Active Substance: RITUXIMAB-ABBS
     Indication: Polyarteritis nodosa
     Dosage: 1000 MG (500 MG/50ML)
     Route: 042
     Dates: start: 20250901, end: 20250901

REACTIONS (3)
  - Laryngeal oedema [Recovered/Resolved]
  - Throat irritation [Recovered/Resolved]
  - Intentional product use issue [Unknown]

NARRATIVE: CASE EVENT DATE: 20250901
